FAERS Safety Report 9030803 (Version 1)
Quarter: 2013Q1

REPORT INFORMATION
  Report Type: Report from Study
  Country: US (occurrence: US)
  Receive Date: 20130123
  Receipt Date: 20130123
  Transmission Date: 20140127
  Serious: Yes (Other)
  Sender: FDA-Public Use
  Company Number: US-ROCHE-1181034

PATIENT
  Age: 39 None
  Sex: Male
  Weight: 79.45 kg

DRUGS (3)
  1. CELLCEPT [Suspect]
     Indication: PRODUCT USED FOR UNKNOWN INDICATION
     Route: 065
  2. PROGRAF [Concomitant]
     Indication: RENAL TRANSPLANT
     Route: 048
     Dates: start: 200511
  3. PREDNISONE [Concomitant]
     Indication: RENAL TRANSPLANT
     Dosage: 1 TABLET
     Route: 048
     Dates: start: 200511

REACTIONS (3)
  - Drug dose omission [Unknown]
  - Renal failure [Unknown]
  - Blood pressure fluctuation [Unknown]
